FAERS Safety Report 7835116-0 (Version None)
Quarter: 2011Q4

REPORT INFORMATION
  Report Type: 
  Country: None (occurrence: None)
  Receive Date: 20111024
  Receipt Date: 20111011
  Transmission Date: 20120403
  Serious: Yes (Hospitalization)
  Sender: FDA-Public Use
  Company Number: US-ELI_LILLY_AND_COMPANY-US201110002932

PATIENT
  Age: 66 Year
  Sex: Female

DRUGS (5)
  1. ZYPREXA [Suspect]
     Indication: BIPOLAR DISORDER
     Dosage: 15 MG, QD
     Dates: start: 20080101
  2. SIMVASTATIN [Concomitant]
  3. ZOLOFT [Concomitant]
  4. DEPAKOTE ER [Concomitant]
  5. COGENTIN [Concomitant]

REACTIONS (1)
  - KNEE ARTHROPLASTY [None]
